FAERS Safety Report 6526965-X (Version None)
Quarter: 2010Q1

REPORT INFORMATION
  Report Type: 
  Country: None (occurrence: None)
  Receive Date: 20100104
  Receipt Date: 20100104
  Transmission Date: 20100710
  Serious: No
  Sender: FDA-Public Use
  Company Number: None

PATIENT
  Sex: Female
  Weight: 68.9467 kg

DRUGS (1)
  1. YAZ [Suspect]
     Indication: CONTRACEPTION
     Dosage: 1 PER DAY
     Dates: start: 20080501, end: 20091201

REACTIONS (2)
  - EMOTIONAL DISORDER [None]
  - LIBIDO DECREASED [None]
